FAERS Safety Report 8370339-6 (Version None)
Quarter: 2012Q2

REPORT INFORMATION
  Report Type: 
  Country: None (occurrence: None)
  Receive Date: 20120518
  Receipt Date: 20110825
  Transmission Date: 20120825
  Serious: No
  Sender: FDA-Public Use
  Company Number: US-ASTRAZENECA-2011SE59100

PATIENT
  Age: 80 Year
  Sex: Male

DRUGS (9)
  1. WARFARIN SODIUM [Concomitant]
     Dosage: UNKNOWN
  2. MULTAQ [Concomitant]
     Dosage: UNKNOWN
  3. GABAPENTIN [Concomitant]
     Dosage: UNKNOWN
  4. INHALER [Concomitant]
     Dosage: UNKNOWN
  5. CARVEDILOL [Concomitant]
     Dosage: UNKNOWN
  6. PRILOSEC OTC [Suspect]
     Route: 048
     Dates: start: 20110819, end: 20110819
  7. ROXICET [Concomitant]
     Indication: PAIN
     Dosage: UNKNOWN
  8. LISINOPRIL [Concomitant]
     Dosage: UNKNOWN
  9. ZOCOR [Concomitant]
     Dosage: UNKNOWN

REACTIONS (3)
  - NECK PAIN [None]
  - PAIN [None]
  - MUSCULOSKELETAL PAIN [None]
